FAERS Safety Report 8620282-X (Version None)
Quarter: 2012Q3

REPORT INFORMATION
  Report Type: 
  Country: None (occurrence: None)
  Receive Date: 20120824
  Receipt Date: 20120816
  Transmission Date: 20120928
  Serious: Yes (Hospitalization, Other)
  Sender: FDA-Public Use
  Company Number: US-ABBOTT-12P-163-0969531-00

PATIENT
  Sex: Female
  Weight: 38.59 kg

DRUGS (1)
  1. LUPRON DEPOT [Suspect]
     Indication: ENDOMETRIOSIS
     Dosage: MONTHLY
     Route: 050

REACTIONS (12)
  - OBSESSIVE-COMPULSIVE DISORDER [None]
  - MENTAL DISORDER [None]
  - ABDOMINAL OPERATION [None]
  - ANOREXIA NERVOSA [None]
  - ANAEMIA [None]
  - PERSONALITY CHANGE [None]
  - ENDOMETRIOSIS [None]
  - OVARIAN CYST [None]
  - HYSTERECTOMY [None]
  - ABDOMINAL DISTENSION [None]
  - PARTNER STRESS [None]
  - MOOD SWINGS [None]
